FAERS Safety Report 23898035 (Version 1)
Quarter: 2024Q2

REPORT INFORMATION
  Report Type: Spontaneous
  Country: US (occurrence: US)
  Receive Date: 20240524
  Receipt Date: 20240524
  Transmission Date: 20240716
  Serious: No
  Sender: FDA-Public Use
  Company Number: US-SA-SAC20240522000150

PATIENT
  Age: 28 Year
  Sex: Male
  Weight: 95.2 kg

DRUGS (2)
  1. DUPIXENT [Suspect]
     Active Substance: DUPILUMAB
     Indication: Dermatitis atopic
     Dosage: 600MG 1X
     Route: 058
     Dates: start: 20240417, end: 20240417
  2. DUPIXENT [Suspect]
     Active Substance: DUPILUMAB
     Dosage: 300 MG, QOW
     Route: 058

REACTIONS (3)
  - Hypersomnia [Recovered/Resolved]
  - Fatigue [Recovered/Resolved]
  - Paternal exposure timing unspecified [Unknown]

NARRATIVE: CASE EVENT DATE: 20240401
